FAERS Safety Report 16295595 (Version 1)
Quarter: 2019Q2

REPORT INFORMATION
  Report Type: Spontaneous
  Country: US (occurrence: US)
  Receive Date: 20190509
  Receipt Date: 20190509
  Transmission Date: 20190711
  Serious: No
  Sender: FDA-Public Use
  Company Number: US-SHIRE-US201914996

PATIENT
  Age: 93 Year
  Sex: Female
  Weight: 52.15 kg

DRUGS (1)
  1. XIIDRA [Suspect]
     Active Substance: LIFITEGRAST
     Indication: DRY EYE
     Dosage: 1 GTT DROPS IN BOTH EYES, 2X/DAY:BID
     Route: 047
     Dates: start: 20190422, end: 20190428

REACTIONS (4)
  - Instillation site reaction [Recovered/Resolved]
  - Inappropriate schedule of product administration [Recovered/Resolved]
  - Vision blurred [Recovered/Resolved]
  - Product use complaint [Unknown]

NARRATIVE: CASE EVENT DATE: 2019
